FAERS Safety Report 5405395-8 (Version None)
Quarter: 2007Q3

REPORT INFORMATION
  Report Type: 
  Country: None (occurrence: None)
  Receive Date: 20070803
  Receipt Date: 20070727
  Transmission Date: 20080115
  Serious: Yes (Other)
  Sender: FDA-Public Use
  Company Number: GB-BOEHRINGER INGELHEIM PHARMACEUTICALS, INC.-2007-DE-04461GD

PATIENT

DRUGS (3)
  1. MELOXICAM [Suspect]
  2. ROFECOXIB [Suspect]
     Indication: COLORECTAL CANCER RECURRENT
     Route: 048
  3. ROFECOXIB [Suspect]
     Indication: PROPHYLAXIS

REACTIONS (1)
  - VENOUS THROMBOSIS [None]
